FAERS Safety Report 10564886 (Version 3)
Quarter: 2015Q1

REPORT INFORMATION
  Report Type: Spontaneous
  Country: AU (occurrence: AU)
  Receive Date: 20141105
  Receipt Date: 20150115
  Transmission Date: 20150720
  Serious: Yes (Hospitalization, Other)
  Sender: FDA-Public Use
  Company Number: AU-AMGEN-AUSSP2014085021

PATIENT
  Age: 77 Year
  Sex: Female

DRUGS (23)
  1. ENBREL [Suspect]
     Active Substance: ETANERCEPT
     Indication: RHEUMATOID ARTHRITIS
     Dosage: 50 MG, WEEKLY
     Route: 065
     Dates: start: 20140729, end: 20140916
  2. CALTRATE WITH VITAMIN D [Concomitant]
     Active Substance: CALCIUM CARBONATE\VITAMIN D
     Dosage: 600 MG, IN THE MORNING, WITH /AFTER FOOD, 600MG IN THE EVENING AS WELL,
  3. LYRICA [Concomitant]
     Active Substance: PREGABALIN
     Dosage: 25MG IN THE MORNING, WITH /AFTER FOOD; 50MG IN THE EVENING
  4. ASPIRIN. [Concomitant]
     Active Substance: ASPIRIN
     Dosage: 100 MG ONE TABLET, IN THE MORNING, WITH /AFTER FOOD
     Dates: end: 20141204
  5. PANADOL [Concomitant]
     Active Substance: ACETAMINOPHEN
     Dosage: 2 DOSE IN THE MORNING, WITH /AFTER FOOD, 2 DOSE AT 2PM, 2 DOSE IN THE EVENING
  6. NOTEN [Concomitant]
     Active Substance: ATENOLOL
     Dosage: 25 MG, EVENING, WITH /AFTER FOOD
  7. REFRESH OPTIVE [Concomitant]
     Active Substance: CARBOXYMETHYLCELLULOSE SODIUM\GLYCERIN
     Dosage: UNK, 4X/DAY
  8. ORAL REHYDRATION SALT [Concomitant]
     Dosage: UNK, AS NEEDED
  9. ZANIDIP [Concomitant]
     Active Substance: LERCANIDIPINE HYDROCHLORIDE
     Dosage: 20 MG, 15 MINUTES BEFORE FOOD
  10. LIPITOR [Concomitant]
     Active Substance: ATORVASTATIN CALCIUM
     Dosage: 20 MG, EVENING, WITH /AFTER FOOD
  11. LOMOTIL [Concomitant]
     Active Substance: ATROPINE SULFATE\DIPHENOXYLATE HYDROCHLORIDE
     Dosage: 2.5MG, 2 TABLETS 3-4 TIMES DAILY
  12. MYLANTA ORIGINAL ANTACID [Concomitant]
     Dosage: UNK, AS NEEDED
  13. NEXIUM [Concomitant]
     Active Substance: ESOMEPRAZOLE MAGNESIUM
     Dosage: 40 MG, IN THE MORNING, WITH/AFTER FOOD
  14. DITROPAN [Concomitant]
     Active Substance: OXYBUTYNIN CHLORIDE
     Dosage: 5 MG 1 TABLET, IN THE MORNING, WITH /AFTER FOOD, 5MG IN THE EVENING,
  15. PREDNISOLONE. [Concomitant]
     Active Substance: PREDNISOLONE
     Dosage: 10 MG, IN THE MORNING, WITH /AFTER FOOD
  16. ENDEP [Concomitant]
     Active Substance: AMITRIPTYLINE HYDROCHLORIDE
     Dosage: 50 MG, EVENING, WITH /AFTER FOOD
  17. SWISS WOMENS ULTIVITE (65+ YEARS) [Concomitant]
     Dosage: UNK, 1X/DAY IN THE MORNING, WITH/AFTER FOOD
  18. MEGAFOL [Concomitant]
     Active Substance: FOLIC ACID
     Dosage: 5 MG, IN THE MORNING, WITH /AFTER FOOD
  19. MICARDIS [Concomitant]
     Active Substance: TELMISARTAN
     Dosage: 40 MG, IN THE MORNING, WITH /AFTER FOOD
  20. ARAVA [Concomitant]
     Active Substance: LEFLUNOMIDE
     Dosage: 20 MG, EVENING, WITH /AFTER FOOD
  21. STEMETIL                           /00013301/ [Concomitant]
     Dosage: 5MG 1 TAB EVERY 8 HOURS, AS NEEDED
  22. JURNISTA BET.M [Concomitant]
     Dosage: 16 MG, 1X/DAY AT 5 PM
  23. ENDONE [Concomitant]
     Active Substance: OXYCODONE HYDROCHLORIDE
     Dosage: 5 MG, AS NEEDED

REACTIONS (2)
  - Lung infection [Recovered/Resolved]
  - Gastrointestinal disorder [Not Recovered/Not Resolved]
